FAERS Safety Report 4492678-1 (Version None)
Quarter: 2004Q4

REPORT INFORMATION
  Report Type: 
  Country: None (occurrence: None)
  Receive Date: 20041029
  Receipt Date: 20041018
  Transmission Date: 20050328
  Serious: Yes (Death)
  Sender: FDA-Public Use
  Company Number: 20041000450

PATIENT
  Sex: Female

DRUGS (4)
  1. LORAZEPAM [Suspect]
     Indication: ANXIETY
     Dosage: 1 MG DAILY
     Dates: start: 20040721, end: 20040816
  2. LORAZEPAM [Suspect]
     Indication: ANXIETY
     Dosage: 0.5 MG DAILY
     Dates: start: 20040817, end: 20040822
  3. TRUXAL (CHLORPROTHIXINE HYDROCHLORIDE) [Concomitant]
  4. CIPRALEX (ESCITALOPRAM) [Concomitant]

REACTIONS (1)
  - COMPLETED SUICIDE [None]
